FAERS Safety Report 7459828-6 (Version None)
Quarter: 2011Q2

REPORT INFORMATION
  Report Type: 
  Country: None (occurrence: None)
  Receive Date: 20110427
  Receipt Date: 20110411
  Transmission Date: 20111010
  Serious: Yes (Hospitalization, Other)
  Sender: FDA-Public Use
  Company Number: FK201100727

PATIENT
  Age: 3 Day
  Sex: Female

DRUGS (1)
  1. OXYTOCIN [Suspect]
     Indication: LABOUR INDUCTION
     Dosage: TRANSPLACENTAL
     Route: 064

REACTIONS (14)
  - VOMITING [None]
  - INAPPROPRIATE ANTIDIURETIC HORMONE SECRETION [None]
  - CRYING [None]
  - JAUNDICE NEONATAL [None]
  - MATERNAL DRUGS AFFECTING FOETUS [None]
  - OLIGURIA [None]
  - FEEDING DISORDER NEONATAL [None]
  - JAUNDICE [None]
  - SOMNOLENCE [None]
  - NEONATAL DISORDER [None]
  - CONVULSION [None]
  - NAUSEA [None]
  - CAESAREAN SECTION [None]
  - RESTLESSNESS [None]
